FAERS Safety Report 6847643-3 (Version None)
Quarter: 2010Q3

REPORT INFORMATION
  Report Type: 
  Country: None (occurrence: None)
  Receive Date: 20100716
  Receipt Date: 20100702
  Transmission Date: 20110219
  Serious: Yes (Other)
  Sender: FDA-Public Use
  Company Number: PHHY2010US36638

PATIENT
  Sex: Female
  Weight: 78.912 kg

DRUGS (26)
  1. ZOMETA [Suspect]
     Indication: METASTASES TO BONE
     Dosage: 3 MG, QMO
     Route: 042
     Dates: start: 20061019
  2. ZOMETA [Suspect]
     Dosage: ONCE EVERY 4 WEEKS
     Route: 042
     Dates: end: 20090607
  3. FEMARA [Concomitant]
     Indication: BREAST CANCER
     Dosage: 2.5 MG, QD
     Dates: start: 20061201
  4. SPIRONOLACTONE [Concomitant]
     Dosage: 2 MG, BID
     Route: 048
  5. SPIRONOLACTONE [Concomitant]
     Dosage: 25 MG, BID
     Route: 048
  6. LORAZEPAM [Concomitant]
     Dosage: 5 MG, BID
     Route: 048
  7. LORAZEPAM [Concomitant]
     Dosage: 5 MG TID PM
     Route: 048
  8. LORAZEPAM [Concomitant]
     Dosage: 0.5 MG, BID PRN
  9. FOLATE [Concomitant]
  10. LASIX [Concomitant]
     Dosage: 20 MG, QD
     Route: 048
  11. SEROQUEL [Concomitant]
     Indication: DEPRESSION
     Dosage: 50 MG, BID
     Route: 048
  12. SYNTHROID [Concomitant]
     Dosage: 50 MG, QD
  13. SYNTHROID [Concomitant]
     Dosage: 50 UG DAILY
  14. POTASSIUM CHLORIDE [Concomitant]
     Dosage: 10 MEQ, QID/ 10 MEQ TWO BY MOUTH QID
  15. ASPIRIN [Concomitant]
     Dosage: 325 MG PM
  16. ASPIRIN [Concomitant]
     Dosage: 81 MG DAILY
  17. LANTUS [Concomitant]
     Indication: DIABETES MELLITUS
     Dosage: 15 U IN A.M. AND 40 U IN P.M.
  18. RADIATION THERAPY [Concomitant]
     Indication: METASTASES TO CHEST WALL
     Dosage: UNK
     Dates: start: 20061103, end: 20061128
  19. RADIATION THERAPY [Concomitant]
     Dosage: UNK
     Dates: start: 20070201, end: 20070228
  20. TAMOXIFEN [Concomitant]
     Dosage: 20 MG A DAY
  21. VITAMIN B1 TAB [Concomitant]
     Dosage: 100 MG, QD
  22. VITAMIN B1 TAB [Concomitant]
     Dosage: 100 UG, DAILY
  23. FOLIC ACID [Concomitant]
     Dosage: 800 UG, QD
  24. MV [Concomitant]
  25. TYLENOL [Concomitant]
     Dosage: UNK
  26. LIDOCAINE HCL VISCOUS [Concomitant]
     Dosage: UNK

REACTIONS (23)
  - ALOPECIA [None]
  - BLOOD CREATININE INCREASED [None]
  - BONE DISORDER [None]
  - BONE LESION [None]
  - BONE SWELLING [None]
  - DENTAL CLEANING [None]
  - ENDODONTIC PROCEDURE [None]
  - ERYTHEMA [None]
  - GINGIVAL ERYTHEMA [None]
  - GINGIVAL INFECTION [None]
  - GINGIVAL PAIN [None]
  - GINGIVAL SWELLING [None]
  - GLYCOSYLATED HAEMOGLOBIN INCREASED [None]
  - LOOSE TOOTH [None]
  - MALAISE [None]
  - OEDEMA PERIPHERAL [None]
  - OSTEOMYELITIS [None]
  - OSTEONECROSIS OF JAW [None]
  - PAIN [None]
  - PAIN IN JAW [None]
  - PALATAL DISORDER [None]
  - PERIODONTAL DISEASE [None]
  - SOFT TISSUE INFECTION [None]
